FAERS Safety Report 23631334 (Version 2)
Quarter: 2024Q2

REPORT INFORMATION
  Report Type: Spontaneous
  Country: US (occurrence: US)
  Receive Date: 20240314
  Receipt Date: 20240506
  Transmission Date: 20240716
  Serious: No
  Sender: FDA-Public Use
  Company Number: US-AMGEN-USASP2024052110

PATIENT
  Sex: Female
  Weight: 60.181 kg

DRUGS (3)
  1. MVASI [Suspect]
     Active Substance: BEVACIZUMAB-AWWB
     Indication: Gastrointestinal cancer metastatic
     Dosage: 300 MILLIGRAM (3 VIALS X 100 MG)
     Route: 065
     Dates: end: 2024
  2. MVASI [Suspect]
     Active Substance: BEVACIZUMAB-AWWB
     Indication: Adenocarcinoma of colon
     Dosage: 300 MILLIGRAM (3 VIAL X 100 MG)
     Route: 065
     Dates: start: 20240216
  3. MVASI [Suspect]
     Active Substance: BEVACIZUMAB-AWWB
     Indication: Colon cancer

REACTIONS (2)
  - Unevaluable event [Unknown]
  - Influenza like illness [Unknown]
